FAERS Safety Report 9514777 (Version 1)
Quarter: 2013Q3

REPORT INFORMATION
  Report Type: Report from Study
  Country: GB (occurrence: GB)
  Receive Date: 20130911
  Receipt Date: 20130911
  Transmission Date: 20140515
  Serious: Yes (Hospitalization)
  Sender: FDA-Public Use
  Company Number: GB-ROCHE-1272934

PATIENT
  Age: 65 Year
  Sex: Male

DRUGS (4)
  1. BEVACIZUMAB [Suspect]
     Indication: GASTROOESOPHAGEAL CANCER
     Dosage: DATRE OF MOST RECENT DOSE 29/JUL/2013, DOSE: 612MG
     Route: 042
     Dates: start: 20130729
  2. EPIRUBICIN [Suspect]
     Indication: GASTROOESOPHAGEAL CANCER
     Dosage: DATE OF MOST RECENT DOSE 29/JUL/2013, DOSE: 100MG
     Route: 042
     Dates: start: 20130729
  3. CAPECITABINE [Suspect]
     Indication: GASTROOESOPHAGEAL CANCER
     Dosage: DATE OF MOST RECENT DOSE 29/JUL/2013, DOSE: 52500 MG
     Route: 048
     Dates: start: 20130729
  4. CISPLATIN [Suspect]
     Indication: GASTROOESOPHAGEAL CANCER
     Dosage: DATE OF MOST RECENT DOSE 29/JUL/2013, DOSE: 120 MG
     Route: 042
     Dates: start: 20130729

REACTIONS (1)
  - Gout [Recovered/Resolved]
